FAERS Safety Report 7410817-7 (Version None)
Quarter: 2011Q2

REPORT INFORMATION
  Report Type: 
  Country: None (occurrence: None)
  Receive Date: 20110413
  Receipt Date: 20110411
  Transmission Date: 20111010
  Serious: Yes (Hospitalization)
  Sender: FDA-Public Use
  Company Number: US-PFIZER INC-2011036291

PATIENT
  Age: 26 Year
  Sex: Male

DRUGS (14)
  1. PROZAC [Suspect]
     Indication: DEPRESSION
     Dosage: UNK
     Dates: end: 20110101
  2. EFFEXOR XR [Suspect]
     Indication: ANXIETY DISORDER
  3. EFFEXOR [Suspect]
     Indication: DEPRESSION
     Dosage: 225MG AND 3 ADDITIONAL 75MG TABLETS DAILY
     Route: 048
     Dates: start: 20110201
  4. WELLBUTRIN [Suspect]
     Indication: ANXIETY DISORDER
  5. ABILIFY [Suspect]
     Indication: DEPRESSION
     Dosage: UNK
     Dates: end: 20110101
  6. ABILIFY [Suspect]
     Indication: ANXIETY DISORDER
  7. SEROQUEL [Concomitant]
     Indication: DEPRESSION
     Dosage: 150 MG, 1X/DAY
     Route: 048
     Dates: start: 20110101
  8. SEROQUEL [Concomitant]
     Indication: ANXIETY
  9. CLONAZEPAM [Suspect]
     Indication: ANXIETY DISORDER
  10. PROZAC [Suspect]
     Indication: ANXIETY DISORDER
  11. EFFEXOR XR [Suspect]
     Indication: DEPRESSION
     Dosage: 225 MG, 1X/DAY
     Route: 048
     Dates: start: 20110101, end: 20110201
  12. EFFEXOR [Suspect]
     Indication: ANXIETY DISORDER
  13. CLONAZEPAM [Suspect]
     Indication: DEPRESSION
     Dosage: UNK
     Dates: end: 20110101
  14. WELLBUTRIN [Suspect]
     Indication: DEPRESSION
     Dosage: UNK
     Dates: end: 20110101

REACTIONS (3)
  - DEPRESSION [None]
  - DRUG INEFFECTIVE [None]
  - MEDICATION ERROR [None]
